FAERS Safety Report 9523471 (Version 1)
Quarter: 2013Q3

REPORT INFORMATION
  Report Type: Spontaneous
  Country: PL (occurrence: PL)
  Receive Date: 20130913
  Receipt Date: 20130913
  Transmission Date: 20140515
  Serious: Yes (Hospitalization, Other)
  Sender: FDA-Public Use
  Company Number: PHHY2013PL097511

PATIENT
  Age: 33 Year
  Sex: Female

DRUGS (9)
  1. METOPROLOL [Suspect]
     Indication: TACHYCARDIA
     Dosage: 2.5 MG, UNK
     Route: 042
  2. METOPROLOL [Suspect]
     Indication: BLOOD PRESSURE INCREASED
  3. GLYCERYL TRINITRATE [Suspect]
     Dosage: UNK UKN, UNK
  4. HEPARIN [Suspect]
     Dosage: UNK UKN, UNK
  5. FUROSEMIDE [Suspect]
     Dosage: UNK UKN, UNK
  6. MORPHINE [Suspect]
     Dosage: UNK UKN, UNK
  7. BROMOCRIPTINE [Concomitant]
     Indication: LACTATION PUERPERAL INCREASED
     Dosage: UNK UKN, UNK
  8. BROMOCRIPTINE [Concomitant]
     Dosage: 2.5 MG, BID (FOR SIX WEEKS)
  9. RAMIPRIL [Concomitant]
     Dosage: 5 MG, QD

REACTIONS (4)
  - Pulmonary oedema [Recovering/Resolving]
  - Cardiac arrest [Recovered/Resolved]
  - Left ventricular dysfunction [Recovering/Resolving]
  - Dyspnoea [Recovering/Resolving]
